FAERS Safety Report 5027328-9 (Version None)
Quarter: 2006Q2

REPORT INFORMATION
  Report Type: 
  Country: None (occurrence: None)
  Receive Date: 20060501
  Receipt Date: 20060208
  Transmission Date: 20061013
  Serious: No
  Sender: FDA-Public Use
  Company Number: 2006PV008350

PATIENT
  Age: 59 Year
  Sex: Male
  Weight: 131.5431 kg

DRUGS (4)
  1. SYMLIN [Suspect]
     Indication: DIABETES MELLITUS NON-INSULIN-DEPENDENT
     Dosage: SEE IMAGE
     Route: 058
     Dates: start: 20050920, end: 20050901
  2. SYMLIN [Suspect]
     Indication: DIABETES MELLITUS NON-INSULIN-DEPENDENT
     Dosage: SEE IMAGE
     Route: 058
     Dates: start: 20050901, end: 20051201
  3. ASPART [Concomitant]
  4. GLARGINE [Concomitant]

REACTIONS (3)
  - DRUG INEFFECTIVE [None]
  - SOMNOLENCE [None]
  - TREMOR [None]
